FAERS Safety Report 7059588-7 (Version None)
Quarter: 2010Q4

REPORT INFORMATION
  Report Type: 
  Country: None (occurrence: None)
  Receive Date: 20101025
  Receipt Date: 20101018
  Transmission Date: 20110411
  Serious: Yes (Life-Threatening, Hospitalization)
  Sender: FDA-Public Use
  Company Number: PHHY2010US56432

PATIENT
  Sex: Female

DRUGS (5)
  1. RECLAST [Suspect]
     Indication: OSTEOPOROSIS
     Dosage: UNK
     Dates: start: 20100210
  2. ANTIHYPERTENSIVES [Concomitant]
  3. PREDNISONE [Concomitant]
     Dosage: 10 MG/DAY
  4. METOPROLOL [Concomitant]
     Indication: BLOOD PRESSURE
  5. OMEPRAZOLE [Concomitant]

REACTIONS (8)
  - BLOOD POTASSIUM INCREASED [None]
  - DIALYSIS [None]
  - DRUG HYPERSENSITIVITY [None]
  - FEELING ABNORMAL [None]
  - MALAISE [None]
  - MYOCARDIAL INFARCTION [None]
  - RENAL DISORDER [None]
  - SWELLING FACE [None]
